FAERS Safety Report 17650564 (Version 1)
Quarter: 2020Q2

REPORT INFORMATION
  Report Type: Spontaneous
  Country: CN (occurrence: CN)
  Receive Date: 20200409
  Receipt Date: 20200409
  Transmission Date: 20200713
  Serious: Yes (Hospitalization, Other)
  Sender: FDA-Public Use
  Company Number: CN-NVP-000009

PATIENT
  Age: 1 Month

DRUGS (7)
  1. SIROLIMUS. [Suspect]
     Active Substance: SIROLIMUS
     Indication: ANGIOSARCOMA
     Route: 065
  2. SIROLIMUS. [Suspect]
     Active Substance: SIROLIMUS
     Indication: HAEMANGIOMA-THROMBOCYTOPENIA SYNDROME
     Route: 065
  3. SIROLIMUS. [Suspect]
     Active Substance: SIROLIMUS
     Indication: HAEMANGIOMA-THROMBOCYTOPENIA SYNDROME
     Route: 065
  4. GLYCYRRHIZIC ACID [Suspect]
     Active Substance: GLYCYRRHIZIN
     Indication: HEPATIC ENZYME INCREASED
     Route: 065
  5. SIROLIMUS. [Suspect]
     Active Substance: SIROLIMUS
     Indication: ANGIOSARCOMA
     Route: 065
  6. METHYLPREDNISOLONE. [Suspect]
     Active Substance: METHYLPREDNISOLONE
     Indication: ANGIOSARCOMA
     Route: 042
  7. METHYLPREDNISOLONE. [Suspect]
     Active Substance: METHYLPREDNISOLONE
     Indication: HAEMANGIOMA-THROMBOCYTOPENIA SYNDROME
     Route: 042

REACTIONS (8)
  - Angiosarcoma [Recovering/Resolving]
  - Interstitial lung disease [Recovered/Resolved]
  - Product use issue [Unknown]
  - Disease recurrence [Recovering/Resolving]
  - Hepatic enzyme increased [Recovered/Resolved]
  - Klebsiella infection [Unknown]
  - Staphylococcal infection [Unknown]
  - Drug effective for unapproved indication [Unknown]
